FAERS Safety Report 15568179 (Version 2)
Quarter: 2018Q4

REPORT INFORMATION
  Report Type: Spontaneous
  Country: DE (occurrence: DE)
  Receive Date: 20181030
  Receipt Date: 20181214
  Transmission Date: 20190205
  Serious: Yes (Hospitalization, Other)
  Sender: FDA-Public Use
  Company Number: PHHY2018DE137562

PATIENT
  Age: 79 Year
  Sex: Male

DRUGS (3)
  1. HEPARIN [Suspect]
     Active Substance: HEPARIN SODIUM
     Indication: ANTICOAGULANT THERAPY
     Dosage: UNK (HEPARIN PERFUSOR, UNFRACTIONATED)
     Route: 042
  2. RIVAROXABAN [Suspect]
     Active Substance: RIVAROXABAN
     Indication: ANTICOAGULANT THERAPY
     Dosage: 15 MG, UNK
     Route: 065
  3. MARCUMAR [Concomitant]
     Active Substance: PHENPROCOUMON
     Indication: PRODUCT USED FOR UNKNOWN INDICATION
     Dosage: UNK
     Route: 065

REACTIONS (12)
  - Overdose [Unknown]
  - Hepatic congestion [Unknown]
  - Product use in unapproved indication [Recovered/Resolved]
  - Pneumonia [Unknown]
  - Acute kidney injury [Unknown]
  - Off label use [Recovered/Resolved]
  - Haematuria [Unknown]
  - Anticoagulation drug level increased [Unknown]
  - Subcutaneous haematoma [Unknown]
  - Renal failure [Unknown]
  - Pleural effusion [Unknown]
  - Cardiac failure [Unknown]

NARRATIVE: CASE EVENT DATE: 2014
